FAERS Safety Report 10227482 (Version 1)
Quarter: 2014Q2

REPORT INFORMATION
  Report Type: Spontaneous
  Country: US (occurrence: US)
  Receive Date: 20140610
  Receipt Date: 20140610
  Transmission Date: 20141212
  Serious: No
  Sender: FDA-Public Use
  Company Number: US-VIIV HEALTHCARE LIMITED-A1061546A

PATIENT
  Sex: Male

DRUGS (2)
  1. TIVICAY [Suspect]
     Indication: HIV INFECTION
     Dosage: 50MG PER DAY
     Route: 048
  2. TRUVADA [Concomitant]

REACTIONS (2)
  - Insomnia [Recovering/Resolving]
  - Dry mouth [Recovering/Resolving]
